FAERS Safety Report 7497229-5 (Version None)
Quarter: 2011Q2

REPORT INFORMATION
  Report Type: 
  Country: None (occurrence: None)
  Receive Date: 20110516
  Receipt Date: 20110503
  Transmission Date: 20111010
  Serious: Yes (Other)
  Sender: FDA-Public Use
  Company Number: 2011MA004906

PATIENT
  Age: 63 Year
  Sex: Male

DRUGS (3)
  1. SELEGILINE [Concomitant]
  2. PRAMIPEXOLE DIHYDROCHLORIDE [Concomitant]
  3. CARBIDOPA AND LEVODOPA [Suspect]
     Indication: PARKINSON'S DISEASE
     Dosage: 400 MG; OD;

REACTIONS (2)
  - PATHOLOGICAL GAMBLING [None]
  - INCORRECT DOSE ADMINISTERED [None]
